FAERS Safety Report 20450004 (Version 1)
Quarter: 2022Q1

REPORT INFORMATION
  Report Type: Spontaneous
  Country: US (occurrence: None)
  Receive Date: 20220209
  Receipt Date: 20220209
  Transmission Date: 20220423
  Serious: Yes (Other)
  Sender: FDA-Public Use
  Company Number: 2022A060990

PATIENT
  Sex: Male

DRUGS (2)
  1. SYMBICORT [Suspect]
     Active Substance: BUDESONIDE\FORMOTEROL FUMARATE DIHYDRATE
     Indication: Asthma
     Route: 055
  2. SYMBICORT [Suspect]
     Active Substance: BUDESONIDE\FORMOTEROL FUMARATE DIHYDRATE
     Indication: Chronic obstructive pulmonary disease
     Route: 055

REACTIONS (11)
  - Deafness [Unknown]
  - Brain stem syndrome [Unknown]
  - Feeling abnormal [Unknown]
  - Cough [Unknown]
  - Unevaluable event [Unknown]
  - Nightmare [Unknown]
  - Gynaecomastia [Unknown]
  - Drug dependence [Unknown]
  - Neck pain [Unknown]
  - Insurance issue [Unknown]
  - Nipple pain [Unknown]
